FAERS Safety Report 23964723 (Version 2)
Quarter: 2024Q3

REPORT INFORMATION
  Report Type: Spontaneous
  Country: US (occurrence: US)
  Receive Date: 20240612
  Receipt Date: 20240711
  Transmission Date: 20241017
  Serious: No
  Sender: NOVARTIS
  Company Number: US-002147023-NVSC2024US121787

PATIENT
  Age: 50 Year
  Sex: Female

DRUGS (1)
  1. KESIMPTA [Suspect]
     Active Substance: OFATUMUMAB
     Indication: Product used for unknown indication
     Dosage: UNK
     Route: 065

REACTIONS (8)
  - Hypoaesthesia [Unknown]
  - Diplopia [Unknown]
  - Gait inability [Unknown]
  - Dizziness [Unknown]
  - Band sensation [Unknown]
  - Gingival bleeding [Unknown]
  - Condition aggravated [Unknown]
  - COVID-19 [Unknown]
